FAERS Safety Report 20149251 (Version 1)
Quarter: 2021Q4

REPORT INFORMATION
  Report Type: Spontaneous
  Country: US (occurrence: US)
  Receive Date: 20211205
  Receipt Date: 20211205
  Transmission Date: 20220303
  Serious: Yes (Life-Threatening, Hospitalization, Other)
  Sender: FDA-Public Use
  Company Number: US-BION-010185

PATIENT
  Age: 79 Year
  Sex: Female

DRUGS (9)
  1. NIMODIPINE [Suspect]
     Active Substance: NIMODIPINE
     Indication: Subarachnoid haemorrhage
     Dosage: FIRST DOSE OF NIMODIPINE 60 MG
  2. METOPROLOL [Concomitant]
     Active Substance: METOPROLOL
     Indication: Hypertension
  3. PROPOFOL [Concomitant]
     Active Substance: PROPOFOL
     Indication: Sedation
     Dosage: 25 MCG/KG/MIN
  4. NICARDIPINE [Concomitant]
     Active Substance: NICARDIPINE
     Dosage: 5 MG/HR
  5. SODIUM CHLORIDE [Concomitant]
     Active Substance: SODIUM CHLORIDE
     Route: 040
  6. PHENYLEPHRINE [Concomitant]
     Active Substance: PHENYLEPHRINE HYDROCHLORIDE
     Dosage: SEVERAL DOSES INTRAVENOUS PUSH TOTALING 26 ML OF 100 MCG/ML DILUTION
     Route: 042
  7. NOREPINEPHRINE [Concomitant]
     Active Substance: NOREPINEPHRINE
     Dosage: QUICKLY TITRATED TO 0.1 MCG/KG/MIN
  8. VASOPRESSIN [Concomitant]
     Active Substance: VASOPRESSIN
     Dosage: 0.04UNITS/MIN, INCREASED TO 0.08UNITS/MIN
  9. EPINEPHRINE [Concomitant]
     Active Substance: EPINEPHRINE
     Dosage: 0.01?MCG/KG/MIN

REACTIONS (1)
  - Vasoplegia syndrome [Recovered/Resolved]
